FAERS Safety Report 22196960 (Version 2)
Quarter: 2023Q4

REPORT INFORMATION
  Report Type: Spontaneous
  Country: CA (occurrence: CA)
  Receive Date: 20230411
  Receipt Date: 20231019
  Transmission Date: 20240109
  Serious: Yes (Other)
  Sender: FDA-Public Use
  Company Number: CA-Covis Pharma Europe B.V.-2023COV00756

PATIENT
  Age: 74 Year
  Sex: Female

DRUGS (13)
  1. ALVESCO [Suspect]
     Active Substance: CICLESONIDE
     Route: 065
  2. ALVESCO [Suspect]
     Active Substance: CICLESONIDE
     Route: 065
  3. BREO ELLIPTA [Suspect]
     Active Substance: FLUTICASONE FUROATE\VILANTEROL TRIFENATATE
     Route: 065
  4. BUDESONIDE\FORMOTEROL FUMARATE DIHYDRATE [Suspect]
     Active Substance: BUDESONIDE\FORMOTEROL FUMARATE DIHYDRATE
     Route: 065
  5. BUDESONIDE\FORMOTEROL FUMARATE DIHYDRATE [Suspect]
     Active Substance: BUDESONIDE\FORMOTEROL FUMARATE DIHYDRATE
     Route: 065
  6. CODEINE [Suspect]
     Active Substance: CODEINE
     Route: 065
  7. PREDNISONE [Suspect]
     Active Substance: PREDNISONE
     Indication: Asthma prophylaxis
     Route: 048
  8. PREDNISONE [Suspect]
     Active Substance: PREDNISONE
     Route: 048
  9. PREDNISONE [Suspect]
     Active Substance: PREDNISONE
     Route: 048
  10. PREDNISONE [Suspect]
     Active Substance: PREDNISONE
     Route: 048
  11. ALBUTEROL SULFATE [Suspect]
     Active Substance: ALBUTEROL SULFATE
     Route: 065
  12. THYROXINE [Suspect]
     Active Substance: LEVOTHYROXINE
     Route: 065
  13. NUCALA [Concomitant]
     Active Substance: MEPOLIZUMAB
     Indication: Asthma
     Route: 042

REACTIONS (28)
  - Abdominal distension [Unknown]
  - Asthma [Unknown]
  - Bronchial disorder [Unknown]
  - Bronchiectasis [Unknown]
  - Bronchitis [Unknown]
  - Bronchopulmonary aspergillosis [Unknown]
  - Cardiac murmur [Unknown]
  - Chest discomfort [Unknown]
  - Chronic sinusitis [Unknown]
  - Diarrhoea [Unknown]
  - Drug hypersensitivity [Unknown]
  - Dyspepsia [Unknown]
  - Flatulence [Unknown]
  - Gastrointestinal disorder [Unknown]
  - Hyperthyroidism [Unknown]
  - Hypothyroidism [Unknown]
  - Ill-defined disorder [Unknown]
  - Infection [Unknown]
  - Liver disorder [Unknown]
  - Loss of personal independence in daily activities [Unknown]
  - Nasal congestion [Unknown]
  - Oedema peripheral [Unknown]
  - Osteoporosis [Unknown]
  - Pulmonary mass [Unknown]
  - Rhinorrhoea [Unknown]
  - Sputum retention [Unknown]
  - Treatment noncompliance [Unknown]
  - Wheezing [Unknown]
